FAERS Safety Report 9242595 (Version 2)
Quarter: 2013Q2

REPORT INFORMATION
  Report Type: Report from Study
  Country: CA (occurrence: CA)
  Receive Date: 20130419
  Receipt Date: 20130621
  Transmission Date: 20140414
  Serious: Yes (Other)
  Sender: FDA-Public Use
  Company Number: CA-GLAXOSMITHKLINE-A0975628A

PATIENT
  Age: 73 Year
  Sex: Male

DRUGS (6)
  1. VOTRIENT [Suspect]
     Indication: RENAL CANCER METASTATIC
     Dosage: 800MG PER DAY
     Route: 048
     Dates: start: 20120425, end: 20130613
  2. PLAVIX [Concomitant]
     Dosage: 75MG UNKNOWN
     Route: 065
  3. ADVAIR [Concomitant]
     Route: 065
  4. RAMIPRIL [Concomitant]
     Dosage: 10MG UNKNOWN
     Route: 065
  5. HCTZ [Concomitant]
     Route: 065
  6. ATORVASTATIN [Concomitant]
     Route: 065

REACTIONS (15)
  - Musculoskeletal pain [Unknown]
  - Muscular weakness [Unknown]
  - Abasia [Unknown]
  - Myalgia [Unknown]
  - Ill-defined disorder [Unknown]
  - Blood pressure increased [Unknown]
  - Pain [Not Recovered/Not Resolved]
  - Asthenia [Unknown]
  - Dizziness [Unknown]
  - Fall [Unknown]
  - Diarrhoea [Not Recovered/Not Resolved]
  - Drug intolerance [Unknown]
  - Epistaxis [Unknown]
  - Malignant neoplasm progression [Not Recovered/Not Resolved]
  - Incoherent [Not Recovered/Not Resolved]
